FAERS Safety Report 6979374-3 (Version None)
Quarter: 2010Q3

REPORT INFORMATION
  Report Type: 
  Country: None (occurrence: None)
  Receive Date: 20100913
  Receipt Date: 20100907
  Transmission Date: 20110219
  Serious: Yes (Life-Threatening)
  Sender: FDA-Public Use
  Company Number: ES-TYCO HEALTHCARE/MALLINCKRODT-T201001869

PATIENT
  Age: 69 Year
  Sex: Male

DRUGS (5)
  1. EXALGO [Suspect]
     Indication: PAIN
     Dosage: 4 MG, QD
     Dates: start: 20100520, end: 20100521
  2. ALPRAZOLAM [Concomitant]
     Indication: ANXIETY
     Dosage: 1 MG, QD
     Dates: start: 20080101
  3. LERCANIDIPINE [Concomitant]
     Indication: CARDIOMYOPATHY
     Dosage: 10 MG,
     Route: 048
     Dates: start: 20100401
  4. OXYCONTIN [Concomitant]
     Indication: PAIN
     Dosage: 10 MG, 3 IN 1 DAY
     Route: 048
     Dates: start: 20080101, end: 20100616
  5. ZYLORIC                            /00003301/ [Concomitant]
     Indication: OSTEOARTHRITIS
     Dosage: 100 MG, QD
     Route: 048
     Dates: start: 20080101

REACTIONS (1)
  - ANGINA PECTORIS [None]
